FAERS Safety Report 15948393 (Version 1)
Quarter: 2019Q1

REPORT INFORMATION
  Report Type: Spontaneous
  Country: FR (occurrence: FR)
  Receive Date: 20190212
  Receipt Date: 20190212
  Transmission Date: 20190417
  Serious: Yes (Hospitalization, Other)
  Sender: FDA-Public Use
  Company Number: FR-BRISTOL-MYERS SQUIBB COMPANY-BMS-2019-011127

PATIENT
  Age: 53 Year
  Sex: Female

DRUGS (4)
  1. OPDIVO [Suspect]
     Active Substance: NIVOLUMAB
     Indication: LUNG DISORDER
     Dosage: UNK, Q2WK
     Route: 065
     Dates: start: 201802, end: 201811
  2. DAFALGAN [Concomitant]
     Active Substance: ACETAMINOPHEN
     Indication: PRODUCT USED FOR UNKNOWN INDICATION
     Route: 065
  3. INEXIUM                            /01479302/ [Concomitant]
     Active Substance: ESOMEPRAZOLE MAGNESIUM
     Indication: PRODUCT USED FOR UNKNOWN INDICATION
     Route: 065
  4. AERIUS                             /01009701/ [Concomitant]
     Active Substance: EBASTINE
     Indication: ERYTHEMA
     Route: 065

REACTIONS (29)
  - Pulmonary oedema [Not Recovered/Not Resolved]
  - Weight decreased [Not Recovered/Not Resolved]
  - Muscle spasms [Recovered/Resolved]
  - Vomiting [Recovered/Resolved]
  - Drug ineffective [Unknown]
  - Asthenia [Unknown]
  - Micturition urgency [Unknown]
  - Cough [Recovered/Resolved]
  - Pruritus [Not Recovered/Not Resolved]
  - Muscle disorder [Unknown]
  - Facial paralysis [Unknown]
  - Ocular hyperaemia [Recovered/Resolved]
  - Urine flow decreased [Unknown]
  - Diarrhoea [Unknown]
  - Blister [Unknown]
  - Myalgia [Recovered/Resolved]
  - Pain [Recovered/Resolved]
  - Macule [Not Recovered/Not Resolved]
  - Paraesthesia [Not Recovered/Not Resolved]
  - Eye disorder [Unknown]
  - Visual impairment [Recovered/Resolved]
  - Pain of skin [Not Recovered/Not Resolved]
  - Abdominal pain upper [Not Recovered/Not Resolved]
  - Erythema [Not Recovered/Not Resolved]
  - Gait disturbance [Unknown]
  - Productive cough [Not Recovered/Not Resolved]
  - Acne [Unknown]
  - Nausea [Recovered/Resolved]
  - Ear pain [Recovered/Resolved]
